FAERS Safety Report 7472725 (Version 4)
Quarter: 2015Q1

REPORT INFORMATION
  Report Type: Spontaneous
  Country: US (occurrence: US)
  Receive Date: 20100714
  Receipt Date: 20150210
  Transmission Date: 20150721
  Serious: Yes (Other)
  Sender: FDA-Public Use
  Company Number: US-ELI_LILLY_AND_COMPANY-US201007000828

PATIENT
  Sex: Male

DRUGS (5)
  1. TESTIM [Concomitant]
     Active Substance: TESTOSTERONE
  2. SYNTHROID [Concomitant]
     Active Substance: LEVOTHYROXINE SODIUM
  3. PREDNISONE. [Concomitant]
     Active Substance: PREDNISONE
  4. HUMATROPE [Suspect]
     Active Substance: SOMATROPIN
     Indication: PITUITARY TUMOUR
     Dosage: 0.2 MG, UNKNOWN
     Dates: start: 2002
  5. HUMATROPE [Suspect]
     Active Substance: SOMATROPIN
     Indication: GROWTH HORMONE DEFICIENCY
     Dosage: 0.2 MG, UNKNOWN
     Dates: start: 2002

REACTIONS (2)
  - Pituitary tumour recurrent [Recovered/Resolved]
  - VIth nerve paralysis [Recovered/Resolved]
